FAERS Safety Report 11336622 (Version 1)
Quarter: 2015Q3

REPORT INFORMATION
  Report Type: Other
  Country: GB (occurrence: GB)
  Receive Date: 20150804
  Receipt Date: 20150804
  Transmission Date: 20151125
  Serious: Yes (Hospitalization)
  Sender: FDA-Public Use
  Company Number: GB-ASTELLAS-2015US027184

PATIENT
  Age: 75 Year
  Sex: Female

DRUGS (1)
  1. MIRABEGRON [Suspect]
     Active Substance: MIRABEGRON
     Indication: INCONTINENCE
     Route: 048
     Dates: start: 20150612, end: 20150706

REACTIONS (2)
  - Urinary retention [Unknown]
  - Vomiting [Unknown]

NARRATIVE: CASE EVENT DATE: 20150613
